FAERS Safety Report 22106177 (Version 1)
Quarter: 2023Q1

REPORT INFORMATION
  Report Type: Spontaneous
  Country: FR (occurrence: FR)
  Receive Date: 20230317
  Receipt Date: 20230317
  Transmission Date: 20230418
  Serious: Yes (Hospitalization, Other)
  Sender: FDA-Public Use
  Company Number: None

PATIENT
  Age: 80 Year
  Sex: Female

DRUGS (3)
  1. LEVOFLOXACIN [Suspect]
     Active Substance: LEVOFLOXACIN
     Indication: Device related infection
     Dosage: 750 MG, QD
     Route: 048
     Dates: start: 20221210
  2. RIFAMPIN [Suspect]
     Active Substance: RIFAMPIN
     Indication: Device related infection
     Dosage: 1200 MG, QD
     Route: 048
     Dates: start: 20221210
  3. PIPERACILLIN [Suspect]
     Active Substance: PIPERACILLIN
     Indication: Device related infection
     Dosage: 12 G, QD
     Route: 042
     Dates: start: 20221217

REACTIONS (1)
  - Neutropenia [Unknown]

NARRATIVE: CASE EVENT DATE: 20221218
